FAERS Safety Report 9775136 (Version 3)
Quarter: 2013Q4

REPORT INFORMATION
  Report Type: Spontaneous
  Country: DE (occurrence: DE)
  Receive Date: 20131220
  Receipt Date: 20131227
  Transmission Date: 20140711
  Serious: Yes (Hospitalization)
  Sender: FDA-Public Use
  Company Number: DE-JNJFOC-20131012252

PATIENT
  Age: 71 Year
  Sex: Female
  Weight: 74 kg

DRUGS (5)
  1. XARELTO [Suspect]
     Indication: THROMBOSIS PROPHYLAXIS
     Route: 065
     Dates: start: 20131121, end: 20131124
  2. METFORMIN [Concomitant]
     Route: 065
     Dates: end: 20131118
  3. ZOLPIDEM [Concomitant]
     Route: 065
  4. AMLODIPINE [Concomitant]
     Route: 065
  5. VALSARTAN [Concomitant]
     Route: 065

REACTIONS (5)
  - Haematoma [Recovering/Resolving]
  - Post procedural haemorrhage [Recovering/Resolving]
  - Oedema peripheral [Recovering/Resolving]
  - Impaired healing [Unknown]
  - Lymphostasis [Unknown]
